FAERS Safety Report 12692914 (Version 2)
Quarter: 2016Q3

REPORT INFORMATION
  Report Type: Report from Study
  Country: US (occurrence: US)
  Receive Date: 20160829
  Receipt Date: 20160901
  Transmission Date: 20161109
  Serious: No
  Sender: FDA-Public Use
  Company Number: PHEH2016US021692

PATIENT
  Age: 22 Year
  Sex: Female

DRUGS (2)
  1. SIGNIFOR LAR [Suspect]
     Active Substance: PASIREOTIDE
     Indication: GIGANTISM
  2. SIGNIFOR LAR [Suspect]
     Active Substance: PASIREOTIDE
     Indication: ACROMEGALY
     Dosage: 40 MG, QMO (ONCE A MONTH)
     Route: 030
     Dates: start: 20160816

REACTIONS (5)
  - Dizziness [Recovered/Resolved]
  - Abdominal discomfort [Recovered/Resolved]
  - Product use issue [Unknown]
  - Feeling hot [Recovered/Resolved]
  - Body temperature increased [Recovered/Resolved]

NARRATIVE: CASE EVENT DATE: 20160816
